FAERS Safety Report 17549950 (Version 2)
Quarter: 2020Q2

REPORT INFORMATION
  Report Type: Spontaneous
  Country: US (occurrence: US)
  Receive Date: 20200317
  Receipt Date: 20200414
  Transmission Date: 20200713
  Serious: No
  Sender: FDA-Public Use
  Company Number: US-PFIZER INC-2020108343

PATIENT
  Age: 62 Year
  Sex: Female

DRUGS (3)
  1. REVATIO [Suspect]
     Active Substance: SILDENAFIL CITRATE
     Indication: HYPERTENSION
     Dosage: 20 MG, 2X/DAY, (1 PILL, TWICE A DAY, BY MOUTH)
     Route: 048
  2. REVATIO [Suspect]
     Active Substance: SILDENAFIL CITRATE
     Indication: CHRONIC RESPIRATORY FAILURE
     Dosage: 4 DF, 3X/DAY
     Route: 048
  3. REVATIO [Suspect]
     Active Substance: SILDENAFIL CITRATE
     Indication: CHRONIC OBSTRUCTIVE PULMONARY DISEASE

REACTIONS (4)
  - Off label use [Unknown]
  - Nasopharyngitis [Unknown]
  - Dysphonia [Unknown]
  - Product use issue [Unknown]

NARRATIVE: CASE EVENT DATE: 202003
